FAERS Safety Report 13278479 (Version 1)
Quarter: 2017Q1

REPORT INFORMATION
  Report Type: Report from Study
  Country: BR (occurrence: BR)
  Receive Date: 20170228
  Receipt Date: 20170228
  Transmission Date: 20170428
  Serious: Yes (Other)
  Sender: FDA-Public Use
  Company Number: BR-ALXN-A201701553AA

PATIENT
  Age: 33 Year
  Sex: Female

DRUGS (2)
  1. SOLIRIS [Suspect]
     Active Substance: ECULIZUMAB
     Dosage: 1200 MG, Q2W
     Route: 042
     Dates: start: 20140529
  2. SOLIRIS [Suspect]
     Active Substance: ECULIZUMAB
     Indication: HAEMOLYTIC URAEMIC SYNDROME
     Dosage: 900 MG, QW
     Route: 042
     Dates: start: 20140430, end: 20140519

REACTIONS (4)
  - Haemolysis [Recovering/Resolving]
  - Cytomegalovirus infection [Recovering/Resolving]
  - Therapy change [Unknown]
  - Blood lactate dehydrogenase abnormal [Unknown]

NARRATIVE: CASE EVENT DATE: 20170209
